FAERS Safety Report 9688618 (Version 1)
Quarter: 2013Q4

REPORT INFORMATION
  Report Type: Spontaneous
  Country: DE (occurrence: None)
  Receive Date: 20131113
  Receipt Date: 20131113
  Transmission Date: 20140711
  Serious: Yes (Other)
  Sender: FDA-Public Use
  Company Number: DE-20130233

PATIENT
  Age: 36 Year
  Sex: Male

DRUGS (2)
  1. DOTAREM [Suspect]
     Indication: NUCLEAR MAGNETIC RESONANCE IMAGING ABDOMINAL
     Route: 042
     Dates: start: 20131024, end: 20131024
  2. RAMIPRIL (RAMIPRIL) (RAMIPRIL) [Concomitant]

REACTIONS (2)
  - Cough [None]
  - Pharyngeal oedema [None]
